FAERS Safety Report 9163211 (Version 3)
Quarter: 2013Q2

REPORT INFORMATION
  Report Type: Spontaneous
  Country: US (occurrence: US)
  Receive Date: 20130314
  Receipt Date: 20130626
  Transmission Date: 20140414
  Serious: Yes (Other)
  Sender: FDA-Public Use
  Company Number: US-GLAXOSMITHKLINE-A1015148A

PATIENT
  Age: 77 Year
  Sex: Female

DRUGS (7)
  1. LAMICTAL [Suspect]
     Indication: PARTIAL SEIZURES
     Dosage: 200MG TWICE PER DAY
     Route: 048
     Dates: start: 2007
  2. SYNTHROID [Concomitant]
  3. PRAVASTATIN [Concomitant]
  4. POTASSIUM [Concomitant]
  5. LOVASTATIN [Concomitant]
  6. PREVACID [Concomitant]
  7. BABY ASPIRIN [Concomitant]

REACTIONS (3)
  - Partial seizures [Unknown]
  - Tremor [Unknown]
  - Product quality issue [Unknown]
